FAERS Safety Report 6582746-2 (Version None)
Quarter: 2010Q1

REPORT INFORMATION
  Report Type: 
  Country: None (occurrence: None)
  Receive Date: 20100216
  Receipt Date: 20100204
  Transmission Date: 20100710
  Serious: Yes (Hospitalization)
  Sender: FDA-Public Use
  Company Number: US-PFIZER INC-2010014607

PATIENT
  Sex: Male
  Weight: 72.1 kg

DRUGS (6)
  1. SUNITINIB MALATE [Suspect]
     Indication: RENAL CELL CARCINOMA
     Dosage: 37.5 MG, 1X/DAY
     Route: 048
     Dates: start: 20091214, end: 20100124
  2. GEMCITABINE [Suspect]
     Indication: RENAL CELL CARCINOMA
     Dosage: 1000 MG/M2, WEEKLY
     Route: 042
     Dates: start: 20091214, end: 20100120
  3. SIMVASTATIN [Concomitant]
     Dosage: UNK
     Dates: start: 20091020
  4. METOPROLOL [Concomitant]
     Dosage: UNK
     Dates: start: 20091020
  5. TYLENOL-500 [Concomitant]
     Dosage: UNK
     Dates: start: 20091020
  6. BACTRIM [Concomitant]
     Dosage: UNK
     Dates: start: 20091117

REACTIONS (2)
  - BACTERAEMIA [None]
  - FEBRILE NEUTROPENIA [None]
